FAERS Safety Report 16051769 (Version 1)
Quarter: 2019Q1

REPORT INFORMATION
  Report Type: Report from Study
  Country: CA (occurrence: CA)
  Receive Date: 20190308
  Receipt Date: 20190308
  Transmission Date: 20190418
  Serious: Yes (Other)
  Sender: FDA-Public Use
  Company Number: CA-TEVA-2019-CA-1020256

PATIENT
  Sex: Female

DRUGS (11)
  1. METHOTREXATE. [Suspect]
     Active Substance: METHOTREXATE
     Indication: PRODUCT USED FOR UNKNOWN INDICATION
     Route: 065
  2. VITAMIN B12 [Concomitant]
     Active Substance: CYANOCOBALAMIN
  3. METFORMIN [Concomitant]
     Active Substance: METFORMIN HYDROCHLORIDE
     Route: 065
  4. DOXYCYCLINE. [Suspect]
     Active Substance: DOXYCYCLINE
     Indication: PRODUCT USED FOR UNKNOWN INDICATION
     Route: 065
  5. CELLCEPT [Suspect]
     Active Substance: MYCOPHENOLATE MOFETIL\MYCOPHENOLATE MOFETIL HYDROCHLORIDE
     Indication: PEMPHIGUS
     Route: 065
  6. EZETIMIBE. [Concomitant]
     Active Substance: EZETIMIBE
  7. TYLENOL #2 [Concomitant]
  8. CLOBETASOL [Concomitant]
     Active Substance: CLOBETASOL
     Route: 065
  9. LOVASTATIN. [Concomitant]
     Active Substance: LOVASTATIN
  10. SYNTHROID [Concomitant]
     Active Substance: LEVOTHYROXINE SODIUM
  11. BLEXTEN [Concomitant]
     Active Substance: BILASTINE

REACTIONS (3)
  - Haemoglobin decreased [Unknown]
  - Treatment failure [Unknown]
  - Gastrointestinal haemorrhage [Unknown]
